FAERS Safety Report 8824479 (Version 2)
Quarter: 2012Q4

REPORT INFORMATION
  Report Type: 
  Country: FI (occurrence: FI)
  Receive Date: 20121004
  Receipt Date: 20121203
  Transmission Date: 20130627
  Serious: Yes (Hospitalization, Other)
  Sender: FDA-Public Use
  Company Number: FI-ELI_LILLY_AND_COMPANY-FI201209007237

PATIENT
  Sex: Female

DRUGS (2)
  1. FORSTEO [Suspect]
     Indication: OSTEOPOROSIS
     Dosage: 20 ug, qd
     Route: 058
     Dates: start: 20120510
  2. CALCIUM                            /01483701/ [Concomitant]
     Dosage: UNK UNK, unknown
     Route: 065

REACTIONS (3)
  - Pyelonephritis [Recovered/Resolved]
  - Cystitis [Unknown]
  - Diarrhoea [Not Recovered/Not Resolved]
